FAERS Safety Report 7978348 (Version 4)
Quarter: 2013Q2

REPORT INFORMATION
  Report Type: Spontaneous
  Country: US (occurrence: US)
  Receive Date: 20110607
  Receipt Date: 20130514
  Transmission Date: 20140414
  Serious: Yes (Other)
  Sender: FDA-Public Use
  Company Number: US-ROCHE-780831

PATIENT
  Age: 13 Year
  Sex: Female
  Weight: 53.5 kg

DRUGS (1)
  1. ACCUTANE [Suspect]
     Indication: ACNE
     Route: 065
     Dates: start: 19990511, end: 19991008

REACTIONS (6)
  - Injury [Unknown]
  - Large intestine polyp [Unknown]
  - Irritable bowel syndrome [Unknown]
  - Cheilitis [Unknown]
  - Lip dry [Unknown]
  - Blood triglycerides increased [Unknown]
